FAERS Safety Report 23237821 (Version 2)
Quarter: 2023Q4

REPORT INFORMATION
  Report Type: Spontaneous
  Country: KR (occurrence: KR)
  Receive Date: 20231128
  Receipt Date: 20231208
  Transmission Date: 20240109
  Serious: Yes (Life-Threatening, Other)
  Sender: FDA-Public Use
  Company Number: KR-Accord-392003

PATIENT
  Age: 39 Year
  Sex: Male

DRUGS (5)
  1. METHOTREXATE [Suspect]
     Active Substance: METHOTREXATE
     Indication: B-cell type acute leukaemia
     Dosage: 15 MG METHOTREXATE 18 TIMES
     Route: 037
     Dates: start: 202109, end: 202203
  2. BLINATUMOMAB [Suspect]
     Active Substance: BLINATUMOMAB
     Indication: B-cell type acute leukaemia
     Dates: start: 202109, end: 202203
  3. INOTUZUMAB OZOGAMICIN [Suspect]
     Active Substance: INOTUZUMAB OZOGAMICIN
     Indication: B-cell type acute leukaemia
     Dates: start: 202209, end: 202212
  4. CYTARABINE [Suspect]
     Active Substance: CYTARABINE
     Indication: B-cell type acute leukaemia
     Dosage: 50 MG CYTARABINE 11 TIMES
     Dates: start: 202209, end: 202212
  5. METHOTREXATE [Suspect]
     Active Substance: METHOTREXATE
     Indication: B-cell type acute leukaemia
     Dosage: 15 MG METHOTREXATE 14 TIMES
     Route: 037
     Dates: start: 202209, end: 202212

REACTIONS (2)
  - Myelopathy [Not Recovered/Not Resolved]
  - Paraplegia [Unknown]

NARRATIVE: CASE EVENT DATE: 20221201
